FAERS Safety Report 17694594 (Version 1)
Quarter: 2020Q2

REPORT INFORMATION
  Report Type: Report from Study
  Country: DE (occurrence: DE)
  Receive Date: 20200422
  Receipt Date: 20200422
  Transmission Date: 20200714
  Serious: Yes (Hospitalization)
  Sender: FDA-Public Use
  Company Number: PHHO2016DE003133

PATIENT
  Age: 37 Year
  Sex: Female
  Weight: 65.8 kg

DRUGS (5)
  1. LCI699 [Suspect]
     Active Substance: OSILODROSTAT
     Indication: PITUITARY-DEPENDENT CUSHING^S SYNDROME
     Dosage: 2 MG, BID
     Route: 048
     Dates: start: 20150717, end: 20150806
  2. LCI699 [Suspect]
     Active Substance: OSILODROSTAT
     Dosage: 7 MG, BID
     Route: 048
     Dates: start: 20150821, end: 20160121
  3. OSILODROSTAT [Suspect]
     Active Substance: OSILODROSTAT
     Indication: PITUITARY-DEPENDENT CUSHING^S SYNDROME
     Dosage: UNK
     Route: 048
     Dates: start: 20160122, end: 20160122
  4. LCI699 [Suspect]
     Active Substance: OSILODROSTAT
     Dosage: 5 MG, BID
     Route: 048
     Dates: start: 20150807, end: 20150820
  5. OSILODROSTAT [Suspect]
     Active Substance: OSILODROSTAT
     Dosage: UNK
     Route: 048
     Dates: start: 20160126

REACTIONS (1)
  - Cholelithiasis [Recovered/Resolved]

NARRATIVE: CASE EVENT DATE: 20160223
